FAERS Safety Report 26102593 (Version 3)
Quarter: 2025Q4

REPORT INFORMATION
  Report Type: Spontaneous
  Country: US (occurrence: US)
  Receive Date: 20251128
  Receipt Date: 20251211
  Transmission Date: 20260118
  Serious: No
  Sender: BIOGEN
  Company Number: US-BIOGEN-2092936

PATIENT
  Age: 37 Year
  Sex: Male

DRUGS (2)
  1. SKYCLARYS [Suspect]
     Active Substance: OMAVELOXOLONE
     Indication: Friedreich^s ataxia
     Dates: start: 20251114
  2. SKYCLARYS [Suspect]
     Active Substance: OMAVELOXOLONE

REACTIONS (8)
  - Dyspepsia [Unknown]
  - Dyskinesia [Unknown]
  - Headache [Unknown]
  - Migraine [Unknown]
  - Back pain [Unknown]
  - Depressed mood [Unknown]
  - Fatigue [Unknown]
  - Underdose [Unknown]

NARRATIVE: CASE EVENT DATE: 20251114
